FAERS Safety Report 8953980 (Version 1)
Quarter: 2012Q4

REPORT INFORMATION
  Report Type: 
  Country: FR (occurrence: FR)
  Receive Date: 20121206
  Receipt Date: 20121206
  Transmission Date: 20130627
  Serious: Yes (Hospitalization)
  Sender: FDA-Public Use
  Company Number: FR-009507513-1211FRA012229

PATIENT
  Age: 37 Year
  Sex: Female

DRUGS (1)
  1. NEXPLANON [Suspect]
     Indication: PRODUCT USED FOR UNKNOWN INDICATION
     Dosage: 1 DF, UNK
     Route: 058
     Dates: start: 20121002

REACTIONS (2)
  - Hepatocellular injury [Unknown]
  - Cholestasis [Unknown]
